FAERS Safety Report 9840122 (Version 1)
Quarter: 2014Q1

REPORT INFORMATION
  Report Type: Spontaneous
  Country: US (occurrence: None)
  Receive Date: 20140121
  Receipt Date: 20140121
  Transmission Date: 20141002
  Serious: Yes (Life-Threatening, Hospitalization)
  Sender: FDA-Public Use
  Company Number: None

PATIENT
  Age: 66 Year
  Sex: Female

DRUGS (1)
  1. BYETTA [Suspect]

REACTIONS (7)
  - Spinal laminectomy [None]
  - Pyrexia [None]
  - Vomiting [None]
  - Abdominal pain [None]
  - Hallucination [None]
  - Local swelling [None]
  - Blood magnesium decreased [None]
